FAERS Safety Report 25753113 (Version 4)
Quarter: 2025Q4

REPORT INFORMATION
  Report Type: Report from Study
  Country: US (occurrence: US)
  Receive Date: 20250902
  Receipt Date: 20251125
  Transmission Date: 20260118
  Serious: Yes (Other)
  Sender: ABBVIE
  Company Number: US-ABBVIE-6398342

PATIENT
  Age: 68 Year
  Sex: Female

DRUGS (2)
  1. SKYRIZI [Suspect]
     Active Substance: RISANKIZUMAB-RZAA
     Indication: Psoriatic arthropathy
     Route: 058
     Dates: start: 2025
  2. SKYRIZI [Suspect]
     Active Substance: RISANKIZUMAB-RZAA
     Route: 058
     Dates: start: 2024

REACTIONS (9)
  - Coronary artery occlusion [Unknown]
  - Gout [Not Recovered/Not Resolved]
  - Psoriatic arthropathy [Recovering/Resolving]
  - Psoriatic arthropathy [Recovered/Resolved]
  - Genital discomfort [Not Recovered/Not Resolved]
  - Gait inability [Unknown]
  - Therapeutic response shortened [Unknown]
  - Diabetes mellitus [Unknown]
  - Dry skin [Not Recovered/Not Resolved]

NARRATIVE: CASE EVENT DATE: 20240101
